FAERS Safety Report 23207454 (Version 1)
Quarter: 2023Q4

REPORT INFORMATION
  Report Type: Report from Study
  Country: US (occurrence: US)
  Receive Date: 20231120
  Receipt Date: 20231120
  Transmission Date: 20240110
  Serious: Yes (Hospitalization, Other)
  Sender: FDA-Public Use
  Company Number: US-HLS-202301363

PATIENT
  Age: 62 Year
  Sex: Male

DRUGS (1)
  1. CLOZAPINE [Suspect]
     Active Substance: CLOZAPINE
     Indication: Product used for unknown indication
     Dosage: 1) 100MG BID PRIOR TO 06/16/2023?2) 100MG AM AND 125MG HS  ON 06/20/2023?3) 150MG BID ON 06/21/2023
     Route: 065

REACTIONS (3)
  - Hallucination, auditory [Recovered/Resolved]
  - Delusional disorder, unspecified type [Recovered/Resolved]
  - Suicidal ideation [Recovered/Resolved]

NARRATIVE: CASE EVENT DATE: 20230616
